FAERS Safety Report 10923949 (Version 1)
Quarter: 2015Q1

REPORT INFORMATION
  Report Type: Spontaneous
  Country: US (occurrence: None)
  Receive Date: 20150316
  Receipt Date: 20150316
  Transmission Date: 20150721
  Serious: No
  Sender: FDA-Public Use
  Company Number: None

PATIENT
  Age: 31 Year
  Sex: Female
  Weight: 72.58 kg

DRUGS (1)
  1. CEFDINIR. [Suspect]
     Active Substance: CEFDINIR
     Indication: PHARYNGITIS STREPTOCOCCAL
     Dosage: 2 PILLS ONCE A DAY
     Route: 048
     Dates: start: 20150214, end: 20150222

REACTIONS (2)
  - Hypersensitivity [None]
  - Urticaria [None]

NARRATIVE: CASE EVENT DATE: 20150222
